FAERS Safety Report 8593580 (Version 2)
Quarter: 2013Q2

REPORT INFORMATION
  Report Type: Spontaneous
  Country: US (occurrence: US)
  Receive Date: 20120604
  Receipt Date: 20130617
  Transmission Date: 20140414
  Serious: Yes (Hospitalization, Disabling)
  Sender: FDA-Public Use
  Company Number: US-ASTRAZENECA-2012SE34884

PATIENT
  Age: 53 Year
  Sex: Female
  Weight: 108.9 kg

DRUGS (5)
  1. NEXIUM [Suspect]
     Indication: GASTROOESOPHAGEAL REFLUX DISEASE
     Route: 048
     Dates: start: 20010101, end: 20011023
  2. NEXIUM [Suspect]
     Indication: GASTROOESOPHAGEAL REFLUX DISEASE
     Route: 048
     Dates: start: 20040713
  3. PRILOSEC [Suspect]
     Route: 048
     Dates: start: 19980101, end: 20010604
  4. PREVACID [Concomitant]
     Dates: start: 20050101, end: 20090908
  5. ASPIRIN [Concomitant]

REACTIONS (10)
  - Nerve injury [Unknown]
  - Sinus headache [Unknown]
  - Blood pressure abnormal [Unknown]
  - Abscess rupture [Unknown]
  - Osteoporosis [Unknown]
  - Multiple fractures [Unknown]
  - Diabetes mellitus [Unknown]
  - Arthritis [Unknown]
  - Osteoarthritis [Unknown]
  - Depression [Unknown]
